FAERS Safety Report 7414617-3 (Version None)
Quarter: 2011Q2

REPORT INFORMATION
  Report Type: 
  Country: None (occurrence: None)
  Receive Date: 20110414
  Receipt Date: 20110221
  Transmission Date: 20111010
  Serious: Yes (Death, Hospitalization)
  Sender: FDA-Public Use
  Company Number: ZA-SANOFI-AVENTIS-2011SA003746

PATIENT
  Age: 42 Year
  Sex: Female
  Weight: 58.9 kg

DRUGS (7)
  1. MOXIFLOXACIN [Concomitant]
     Indication: PULMONARY TUBERCULOSIS
     Dates: start: 20101221
  2. COTRIM [Concomitant]
     Route: 048
     Dates: start: 20101229, end: 20110111
  3. ISONIAZID [Suspect]
     Indication: PULMONARY TUBERCULOSIS
     Dates: start: 20101221
  4. HERBAL PREPARATION [Concomitant]
     Route: 048
     Dates: start: 20110102, end: 20110112
  5. RIFAMPICIN [Suspect]
     Indication: PULMONARY TUBERCULOSIS
     Route: 048
     Dates: start: 20101221
  6. PYRAZINAMIDE [Suspect]
     Indication: PULMONARY TUBERCULOSIS
     Route: 048
     Dates: start: 20101221
  7. ETHAMBUTOL HYDROCHLORIDE [Suspect]
     Indication: PULMONARY TUBERCULOSIS
     Route: 065
     Dates: start: 20101221

REACTIONS (7)
  - HEPATOMEGALY [None]
  - RENAL FAILURE [None]
  - FATIGUE [None]
  - HEPATITIS ACUTE [None]
  - RASH MACULO-PAPULAR [None]
  - PYREXIA [None]
  - JAUNDICE [None]
